FAERS Safety Report 16466178 (Version 1)
Quarter: 2019Q2

REPORT INFORMATION
  Report Type: Other
  Country: US (occurrence: US)
  Receive Date: 20190621
  Receipt Date: 20190621
  Transmission Date: 20190711
  Serious: No
  Sender: FDA-Public Use
  Company Number: US-ACORDA-ACO_159364_2019

PATIENT
  Age: 71 Year
  Sex: Male

DRUGS (2)
  1. INBRIJA [Suspect]
     Active Substance: LEVODOPA
     Indication: PARKINSON^S DISEASE
     Dosage: 84 MILLIGRAM PRN UP TO FIVE TIMES A DAY
     Dates: start: 201906
  2. INBRIJA [Suspect]
     Active Substance: LEVODOPA
     Indication: ON AND OFF PHENOMENON

REACTIONS (5)
  - Therapeutic product effect incomplete [Unknown]
  - Product size issue [Unknown]
  - Product use issue [Unknown]
  - Hypoacusis [Unknown]
  - Cough [Unknown]

NARRATIVE: CASE EVENT DATE: 201906
